FAERS Safety Report 8289107-9 (Version None)
Quarter: 2012Q2

REPORT INFORMATION
  Report Type: 
  Country: None (occurrence: None)
  Receive Date: 20120412
  Receipt Date: 20120402
  Transmission Date: 20120825
  Serious: Yes (Death, Life-Threatening, Hospitalization, Other)
  Sender: FDA-Public Use
  Company Number: 2008AL011787

PATIENT
  Age: 75 Year
  Sex: Male
  Weight: 62.1428 kg

DRUGS (76)
  1. ASPIRIN [Concomitant]
  2. RENAGEL [Concomitant]
  3. NEPHROCAPS [Concomitant]
  4. PERI-COLACE [Concomitant]
  5. DOXYCYCLINE [Concomitant]
  6. LISINOPRIL [Concomitant]
  7. DARVOCET-N 50 [Concomitant]
  8. ZEMPLAR [Concomitant]
  9. DIGOXIN [Suspect]
     Indication: CARDIAC FAILURE CONGESTIVE
     Dosage: 0.125 MG, MWF, PO
     Route: 048
     Dates: start: 19960208, end: 20080108
  10. COREG [Concomitant]
  11. MULTI-VITAMINS [Concomitant]
  12. ANCEF [Concomitant]
  13. MIRAPEX [Concomitant]
  14. VANCOMYCIN [Concomitant]
  15. MELATONIN [Concomitant]
  16. CELEBREX [Concomitant]
  17. PROPO/APAP [Concomitant]
  18. ANUCORT [Concomitant]
  19. PREDNISONE TAB [Concomitant]
  20. HOMATROPINE [Concomitant]
  21. ALKA-SELTZER [Concomitant]
  22. TYLENOL (CAPLET) [Concomitant]
  23. COLCHICINE [Concomitant]
  24. BAKING SODA [Concomitant]
  25. CALCIJEX [Concomitant]
  26. ENSURE [Concomitant]
  27. OMEPRAZOLE [Concomitant]
  28. NITROGLYCERIN [Concomitant]
  29. HEMOCYTE [Concomitant]
  30. LASIX [Concomitant]
  31. NITROGLYCERIN [Concomitant]
  32. VERSED [Concomitant]
  33. INDOCIN [Concomitant]
  34. UROKINASE [Concomitant]
  35. ULTRAM [Concomitant]
  36. NAPROXEN [Concomitant]
  37. ECONOPRED [Concomitant]
  38. NEXIUM [Concomitant]
  39. CALADRYL [Concomitant]
  40. PROCARDIA [Concomitant]
  41. DARVOCET [Concomitant]
  42. STEROIDS [Concomitant]
  43. OXYCODONE HCL AND ACETAMINOPHEN [Concomitant]
  44. MARINOL [Concomitant]
  45. ASPIRIN [Concomitant]
  46. PROMOD [Concomitant]
  47. COSOPT [Concomitant]
  48. DYNACIRC [Concomitant]
  49. CALCIUM CARBONATE [Concomitant]
  50. NAPROXEN (ALEVE) [Concomitant]
  51. EPOGEN [Concomitant]
  52. DEPO-MEDROL [Concomitant]
  53. LIDOCAINE [Concomitant]
  54. CEFOTAXIME [Concomitant]
  55. DOPAMINE HCL [Concomitant]
  56. ZESTRIL [Concomitant]
  57. FAMVIR [Concomitant]
  58. PHOSLO [Concomitant]
  59. IRON [Concomitant]
  60. DEMEROL [Concomitant]
  61. CREATININE [Concomitant]
  62. GENTAMICIN [Concomitant]
  63. SENSIPAR [Concomitant]
  64. LIDOCAINE [Concomitant]
  65. COLACE [Concomitant]
  66. LOMOTIL [Concomitant]
  67. NEURONTIN [Concomitant]
  68. SILVER NITRATE [Concomitant]
  69. ALLOPURINOL [Concomitant]
  70. IBUPROFEN [Concomitant]
  71. COUMADIN [Concomitant]
  72. PHENERGAN HCL [Concomitant]
  73. PREVACID [Concomitant]
  74. ANTIBIOTICS [Concomitant]
  75. IMODIUM [Concomitant]
  76. CARAFATE [Concomitant]

REACTIONS (107)
  - HYPOTENSION [None]
  - ATRIAL FIBRILLATION [None]
  - INFECTIOUS PERITONITIS [None]
  - CHILLS [None]
  - CACHEXIA [None]
  - NEPHROGENIC ANAEMIA [None]
  - DIVERTICULUM INTESTINAL [None]
  - MASS [None]
  - OSTEOARTHRITIS [None]
  - OEDEMA [None]
  - ATELECTASIS [None]
  - METASTATIC NEOPLASM [None]
  - CHRONIC HEPATITIS [None]
  - DYSPNOEA [None]
  - DIALYSIS [None]
  - HYPOALBUMINAEMIA [None]
  - HAEMORRHAGE [None]
  - CONTUSION [None]
  - SPINAL COLUMN STENOSIS [None]
  - TENDERNESS [None]
  - FAT NECROSIS [None]
  - FATIGUE [None]
  - BRADYCARDIA [None]
  - ANAEMIA [None]
  - INFLAMMATION [None]
  - NASOPHARYNGITIS [None]
  - SEPSIS [None]
  - ARTHRALGIA [None]
  - ABDOMINAL PAIN [None]
  - ABDOMINAL DISTENSION [None]
  - RESPIRATORY DISTRESS [None]
  - SLEEP APNOEA SYNDROME [None]
  - SKIN ULCER [None]
  - HEPATIC FIBROSIS [None]
  - ELECTROCARDIOGRAM ST SEGMENT DEPRESSION [None]
  - ANXIETY [None]
  - COUGH [None]
  - DIARRHOEA [None]
  - EPIGASTRIC DISCOMFORT [None]
  - CATARACT [None]
  - ELECTROCARDIOGRAM T WAVE INVERSION [None]
  - MELAENA [None]
  - PYREXIA [None]
  - CHEST PAIN [None]
  - POLYP [None]
  - NASAL CONGESTION [None]
  - HEPATOMEGALY [None]
  - BILIARY TRACT DISORDER [None]
  - SINUSITIS [None]
  - VENTRICULAR ARRHYTHMIA [None]
  - FLATULENCE [None]
  - HYPERPARATHYROIDISM [None]
  - ARTERIOSCLEROSIS CORONARY ARTERY [None]
  - LIVER DISORDER [None]
  - WEIGHT DECREASED [None]
  - FAILURE TO THRIVE [None]
  - NEUROPATHY PERIPHERAL [None]
  - MUSCLE STRAIN [None]
  - SKIN WARM [None]
  - MYOCARDIAL INFARCTION [None]
  - ELECTROENCEPHALOGRAM ABNORMAL [None]
  - ULCER [None]
  - CYANOSIS [None]
  - PULMONARY HYPERTENSION [None]
  - SYNOVITIS [None]
  - PAIN [None]
  - ARTHRITIS [None]
  - VENTRICULAR TACHYCARDIA [None]
  - FEELING ABNORMAL [None]
  - PLEURAL EFFUSION [None]
  - EFFUSION [None]
  - HAEMORRHOIDAL HAEMORRHAGE [None]
  - DYSPHAGIA [None]
  - ORTHOPNOEA [None]
  - PULMONARY OEDEMA [None]
  - DUODENAL POLYP [None]
  - RIGHT VENTRICULAR FAILURE [None]
  - PLEURAL FIBROSIS [None]
  - CELLULITIS [None]
  - HEART RATE IRREGULAR [None]
  - INTESTINAL OBSTRUCTION [None]
  - INJURY [None]
  - DIZZINESS [None]
  - TOXICITY TO VARIOUS AGENTS [None]
  - ASCITES [None]
  - KYPHOSIS [None]
  - GASTROINTESTINAL HAEMORRHAGE [None]
  - CARDIOMEGALY [None]
  - ERYTHEMA [None]
  - VENOUS STENOSIS [None]
  - SOMNOLENCE [None]
  - TRACHOMA [None]
  - NAUSEA [None]
  - ASTHENIA [None]
  - CONSTIPATION [None]
  - NEPHROPATHY [None]
  - HYPERTENSION [None]
  - MALNUTRITION [None]
  - HYPERTENSIVE NEPHROPATHY [None]
  - GLAUCOMA [None]
  - WHEEZING [None]
  - SWELLING [None]
  - TENSION [None]
  - LEFT VENTRICULAR HYPERTROPHY [None]
  - FIBROSIS [None]
  - IRON OVERLOAD [None]
  - PNEUMOTHORAX [None]
